FAERS Safety Report 8493921-4 (Version None)
Quarter: 2012Q3

REPORT INFORMATION
  Report Type: 
  Country: None (occurrence: None)
  Receive Date: 20120708
  Receipt Date: 20120702
  Transmission Date: 20120928
  Serious: Yes (Other)
  Sender: FDA-Public Use
  Company Number: US-AMGEN-USASP2012033961

PATIENT
  Age: 65 Year
  Sex: Female
  Weight: 81.088 kg

DRUGS (1)
  1. PROLIA [Suspect]
     Indication: OSTEOPOROSIS POSTMENOPAUSAL
     Dosage: 60 MG, Q6MO
     Route: 058
     Dates: start: 20120430

REACTIONS (8)
  - PELVIC ABSCESS [None]
  - POSTMENOPAUSAL HAEMORRHAGE [None]
  - ANAEMIA [None]
  - ABDOMINAL PAIN [None]
  - URINARY TRACT INFECTION [None]
  - DIVERTICULITIS [None]
  - PELVIC MASS [None]
  - FEMALE GENITAL TRACT FISTULA [None]
